FAERS Safety Report 15386415 (Version 2)
Quarter: 2018Q3

REPORT INFORMATION
  Report Type: Spontaneous
  Country: US (occurrence: US)
  Receive Date: 20180914
  Receipt Date: 20180921
  Transmission Date: 20181010
  Serious: Yes (Other)
  Sender: FDA-Public Use
  Company Number: US-SA-2018SA252265

PATIENT
  Age: 34 Year
  Sex: Male

DRUGS (4)
  1. PRALUENT [Suspect]
     Active Substance: ALIROCUMAB
     Indication: TYPE IIA HYPERLIPIDAEMIA
     Dosage: UNK
     Route: 058
     Dates: start: 2016
  2. PRALUENT [Suspect]
     Active Substance: ALIROCUMAB
     Dosage: UNK
     Route: 058
  3. ALIROCUMAB PREFILLED PEN [Suspect]
     Active Substance: ALIROCUMAB
     Indication: TYPE IIA HYPERLIPIDAEMIA
     Dosage: UNK, QOW
     Route: 058
     Dates: start: 2016
  4. ALIROCUMAB PREFILLED PEN [Suspect]
     Active Substance: ALIROCUMAB
     Dosage: UNK
     Route: 058

REACTIONS (19)
  - Crohn^s disease [Unknown]
  - Chronic gastritis [Unknown]
  - Blood creatinine increased [Unknown]
  - Steatorrhoea [Unknown]
  - Autoimmune thyroiditis [Unknown]
  - Haematochezia [Unknown]
  - Nausea [Unknown]
  - Polyuria [Unknown]
  - Hepatic fibrosis [Unknown]
  - Inflammatory marker increased [Unknown]
  - Renal disorder [Unknown]
  - Liver function test increased [Recovered/Resolved]
  - Vitamin B12 decreased [Unknown]
  - Pernicious anaemia [Unknown]
  - Atrophy [Unknown]
  - Non-alcoholic steatohepatitis [Unknown]
  - Cognitive disorder [Unknown]
  - Ileal ulcer [Unknown]
  - Fatigue [Unknown]
